FAERS Safety Report 4467241-9 (Version None)
Quarter: 2004Q4

REPORT INFORMATION
  Report Type: 
  Country: None (occurrence: None)
  Receive Date: 20041006
  Receipt Date: 20041002
  Transmission Date: 20050328
  Serious: Yes (Death)
  Sender: FDA-Public Use
  Company Number: ES-MERCK-0410ESP00025

PATIENT
  Age: 84 Year
  Sex: Male

DRUGS (2)
  1. [THERAPY UNSPECIFIED] [Concomitant]
     Route: 065
  2. VIOXX [Suspect]
     Route: 065
     Dates: start: 20000801, end: 20020312

REACTIONS (1)
  - DEATH [None]
